FAERS Safety Report 20882337 (Version 1)
Quarter: 2022Q2

REPORT INFORMATION
  Report Type: Report from Study
  Country: TW (occurrence: TW)
  Receive Date: 20220527
  Receipt Date: 20220527
  Transmission Date: 20220720
  Serious: Yes (Other)
  Sender: FDA-Public Use
  Company Number: TW-JNJFOC-20220536817

PATIENT

DRUGS (14)
  1. HALDOL [Interacting]
     Active Substance: HALOPERIDOL
     Indication: Product used for unknown indication
     Route: 065
  2. RISPERDAL [Interacting]
     Active Substance: RISPERIDONE
     Indication: Product used for unknown indication
     Route: 065
  3. APIXABAN [Interacting]
     Active Substance: APIXABAN
     Indication: Product used for unknown indication
     Route: 065
  4. DABIGATRAN [Interacting]
     Active Substance: DABIGATRAN
     Indication: Product used for unknown indication
     Route: 065
  5. EDOXABAN [Interacting]
     Active Substance: EDOXABAN
     Indication: Product used for unknown indication
     Route: 065
  6. RIVAROXABAN [Interacting]
     Active Substance: RIVAROXABAN
     Indication: Product used for unknown indication
     Route: 065
  7. PROCHLORPERAZINE [Concomitant]
     Active Substance: PROCHLORPERAZINE
     Indication: Product used for unknown indication
     Route: 065
  8. FLUPENTIXOL [Concomitant]
     Active Substance: FLUPENTIXOL
     Indication: Product used for unknown indication
     Route: 065
  9. CHLORPROMAZINE [Concomitant]
     Active Substance: CHLORPROMAZINE
     Indication: Product used for unknown indication
     Route: 065
  10. DROPERIDOL [Concomitant]
     Active Substance: DROPERIDOL
     Indication: Product used for unknown indication
     Route: 065
  11. QUETIAPINE [Concomitant]
     Active Substance: QUETIAPINE
     Indication: Product used for unknown indication
     Route: 065
  12. OLANZAPINE [Concomitant]
     Active Substance: OLANZAPINE
     Indication: Product used for unknown indication
     Route: 065
  13. ARIPIPRAZOLE [Concomitant]
     Active Substance: ARIPIPRAZOLE
     Indication: Product used for unknown indication
     Route: 065
  14. FLUPENTIXOL\MELITRACEN [Concomitant]
     Active Substance: FLUPENTIXOL\MELITRACEN
     Indication: Product used for unknown indication
     Route: 065

REACTIONS (9)
  - Cerebral haemorrhage [Unknown]
  - Spinal cord haemorrhage [Unknown]
  - Eye haemorrhage [Unknown]
  - Retroperitoneal haemorrhage [Unknown]
  - Pericardial haemorrhage [Unknown]
  - Gastrointestinal haemorrhage [Unknown]
  - Haemarthrosis [Unknown]
  - Haemorrhage [Unknown]
  - Drug interaction [Unknown]
